FAERS Safety Report 6610827-3 (Version None)
Quarter: 2010Q1

REPORT INFORMATION
  Report Type: 
  Country: None (occurrence: None)
  Receive Date: 20100302
  Receipt Date: 20100222
  Transmission Date: 20100710
  Serious: Yes (Hospitalization, Other)
  Sender: FDA-Public Use
  Company Number: FR-AMGEN-QUU389652

PATIENT
  Sex: Female
  Weight: 82 kg

DRUGS (4)
  1. NEULASTA [Suspect]
     Indication: CHEMOTHERAPY
     Route: 058
     Dates: start: 20100106
  2. FLUOROURACIL [Concomitant]
     Dates: start: 20100104
  3. EPIRUBICIN [Concomitant]
     Dates: start: 20100104
  4. CYCLOPHOSPHAMIDE [Concomitant]
     Dates: start: 20100104

REACTIONS (6)
  - FEBRILE NEUTROPENIA [None]
  - HYPOTENSION [None]
  - INAPPROPRIATE SCHEDULE OF DRUG ADMINISTRATION [None]
  - INFECTION [None]
  - PERFORMANCE STATUS DECREASED [None]
  - PYREXIA [None]
